FAERS Safety Report 12646297 (Version 2)
Quarter: 2016Q3

REPORT INFORMATION
  Report Type: Spontaneous
  Country: US (occurrence: US)
  Receive Date: 20160812
  Receipt Date: 20160913
  Transmission Date: 20161109
  Serious: Yes (Death, Other)
  Sender: FDA-Public Use
  Company Number: US-009507513-1608USA003796

PATIENT
  Age: 67 Year
  Sex: Male

DRUGS (6)
  1. VANCOMYCIN [Suspect]
     Active Substance: VANCOMYCIN
     Indication: PYREXIA
  2. MEROPENEM. [Suspect]
     Active Substance: MEROPENEM
     Indication: CULTURE NEGATIVE
  3. VANCOMYCIN [Suspect]
     Active Substance: VANCOMYCIN
     Indication: CULTURE NEGATIVE
  4. MEROPENEM. [Suspect]
     Active Substance: MEROPENEM
     Indication: PYREXIA
  5. CANCIDAS [Suspect]
     Active Substance: CASPOFUNGIN ACETATE
     Indication: CULTURE NEGATIVE
  6. CANCIDAS [Suspect]
     Active Substance: CASPOFUNGIN ACETATE
     Indication: PYREXIA

REACTIONS (2)
  - Drug ineffective [Fatal]
  - Trichosporon infection [Fatal]
